FAERS Safety Report 18181774 (Version 6)
Quarter: 2023Q4

REPORT INFORMATION
  Report Type: Report from Study
  Country: DE (occurrence: DE)
  Receive Date: 20200821
  Receipt Date: 20231208
  Transmission Date: 20240110
  Serious: Yes (Hospitalization, Other)
  Sender: FDA-Public Use
  Company Number: DE-TAKEDA-2020TUS034793

PATIENT
  Sex: Male

DRUGS (10)
  1. BRENTUXIMAB VEDOTIN [Suspect]
     Active Substance: BRENTUXIMAB VEDOTIN
     Indication: Hodgkin^s disease
     Dosage: UNK
     Route: 065
     Dates: start: 20200803
  2. CYCLOPHOSPHAMIDE [Suspect]
     Active Substance: CYCLOPHOSPHAMIDE
     Indication: Hodgkin^s disease
     Dosage: 2322 MILLIGRAM/SQ. METER
     Route: 065
     Dates: start: 20200804
  3. DOXORUBICIN [Suspect]
     Active Substance: DOXORUBICIN
     Indication: Hodgkin^s disease
     Dosage: 74 MILLIGRAM/SQ. METER
     Route: 065
     Dates: start: 20200804
  4. ETOPOSIDE [Suspect]
     Active Substance: ETOPOSIDE
     Indication: Hodgkin^s disease
     Dosage: 279 MILLIGRAM/SQ. METER
     Route: 065
     Dates: start: 20200804
  5. DACARBAZINE [Suspect]
     Active Substance: DACARBAZINE
     Indication: Hodgkin^s disease
     Dosage: 464 MILLIGRAM/SQ. METER
     Route: 065
     Dates: start: 20200805
  6. DEXAMETHASONE [Suspect]
     Active Substance: DEXAMETHASONE
     Indication: Hodgkin^s disease
     Dosage: UNK
     Route: 065
     Dates: start: 20200804
  7. CIPROBAY                           /00697201/ [Concomitant]
     Dosage: 1000 MILLIGRAM
     Route: 065
     Dates: start: 20200507
  8. SULFAMETHOXAZOLE\TRIMETHOPRIM [Concomitant]
     Active Substance: SULFAMETHOXAZOLE\TRIMETHOPRIM
     Dosage: 960 MILLIGRAM
     Route: 065
     Dates: start: 20200429
  9. PANTOZOL                           /01263204/ [Concomitant]
     Dosage: 40 MILLIGRAM
     Route: 065
     Dates: start: 20200424
  10. VALSARTAN [Concomitant]
     Active Substance: VALSARTAN
     Dosage: 80 MILLIGRAM
     Route: 065
     Dates: start: 20200424

REACTIONS (3)
  - Gastrointestinal pain [Unknown]
  - Febrile neutropenia [Recovered/Resolved]
  - Infection [Recovered/Resolved]

NARRATIVE: CASE EVENT DATE: 20200813
